FAERS Safety Report 11212421 (Version 3)
Quarter: 2015Q3

REPORT INFORMATION
  Report Type: Spontaneous
  Country: GB (occurrence: GB)
  Receive Date: 20150623
  Receipt Date: 20150814
  Transmission Date: 20151125
  Serious: Yes (Hospitalization, Other)
  Sender: FDA-Public Use
  Company Number: GB-AMGEN-GBRSP2015060050

PATIENT
  Age: 82 Year
  Sex: Male

DRUGS (1)
  1. ARANESP [Suspect]
     Active Substance: DARBEPOETIN ALFA
     Indication: PRODUCT USED FOR UNKNOWN INDICATION
     Dosage: 40 MUG, QWK, ANG
     Route: 065

REACTIONS (5)
  - Toe amputation [Unknown]
  - Limb discomfort [Unknown]
  - Device malfunction [Unknown]
  - Cardiac pacemaker insertion [Unknown]
  - Fall [Unknown]
